FAERS Safety Report 8502306-3 (Version None)
Quarter: 2012Q3

REPORT INFORMATION
  Report Type: 
  Country: None (occurrence: None)
  Receive Date: 20120711
  Receipt Date: 20120706
  Transmission Date: 20120928
  Serious: No
  Sender: FDA-Public Use
  Company Number: SE-BAYER-2012-061310

PATIENT
  Age: 26 Year
  Sex: Female

DRUGS (1)
  1. MIRENA [Suspect]
     Indication: CONTRACEPTION
     Dosage: 20 MCG/24HR, CONT
     Route: 015
     Dates: start: 20120221, end: 20120618

REACTIONS (5)
  - SLEEP DISORDER [None]
  - HOT FLUSH [None]
  - HYPERHIDROSIS [None]
  - DYSURIA [None]
  - MICTURITION URGENCY [None]
